FAERS Safety Report 9979594 (Version 2)
Quarter: 2014Q1

REPORT INFORMATION
  Report Type: Report from Study
  Country: US (occurrence: US)
  Receive Date: 20140306
  Receipt Date: 20140306
  Transmission Date: 20141002
  Serious: No
  Sender: FDA-Public Use
  Company Number: US-ABBVIE-13P-163-1153378-00

PATIENT
  Age: 52 Year
  Sex: Female

DRUGS (6)
  1. HUMIRA [Suspect]
     Indication: CROHN^S DISEASE
     Route: 058
     Dates: start: 20130926, end: 20130926
  2. HUMIRA [Suspect]
     Dates: start: 20131010, end: 20131010
  3. HUMIRA [Suspect]
  4. ATIVAN [Concomitant]
     Indication: ANXIETY
  5. LORTAB [Concomitant]
     Indication: PAIN
  6. ALIGN PROBIOTIC [Concomitant]
     Indication: CROHN^S DISEASE

REACTIONS (4)
  - Injection site bruising [Recovering/Resolving]
  - Incorrect dose administered [Unknown]
  - Injection site pain [Recovered/Resolved]
  - Injection site haemorrhage [Recovered/Resolved]
